FAERS Safety Report 23715387 (Version 5)
Quarter: 2025Q2

REPORT INFORMATION
  Report Type: Report from Study
  Country: CA (occurrence: CA)
  Receive Date: 20240407
  Receipt Date: 20250526
  Transmission Date: 20250716
  Serious: Yes (Hospitalization)
  Sender: ABBVIE
  Company Number: CA-ABBVIE-5705717

PATIENT
  Age: 66 Year
  Sex: Male
  Weight: 106.8 kg

DRUGS (24)
  1. RISANKIZUMAB [Suspect]
     Active Substance: RISANKIZUMAB
     Indication: Crohn^s disease
     Route: 058
     Dates: start: 20230923, end: 20230923
  2. RISANKIZUMAB [Suspect]
     Active Substance: RISANKIZUMAB
     Indication: Crohn^s disease
     Route: 042
     Dates: start: 20230627, end: 20230627
  3. RISANKIZUMAB [Suspect]
     Active Substance: RISANKIZUMAB
     Indication: Crohn^s disease
     Route: 042
     Dates: start: 20230726, end: 20230726
  4. RISANKIZUMAB [Suspect]
     Active Substance: RISANKIZUMAB
     Indication: Crohn^s disease
     Route: 042
     Dates: start: 20230828, end: 20230828
  5. LEVOTHYROXINE [Concomitant]
     Active Substance: LEVOTHYROXINE
     Indication: Hypothyroidism
     Route: 048
     Dates: start: 2015
  6. METHOTREXATE [Concomitant]
     Active Substance: METHOTREXATE
     Indication: Crohn^s disease
     Route: 048
     Dates: start: 20230320
  7. AMLODIPINE [Concomitant]
     Active Substance: AMLODIPINE BESYLATE
     Indication: Hypertension
     Route: 048
     Dates: start: 20230320
  8. CANDESARTAN [Concomitant]
     Active Substance: CANDESARTAN
     Indication: Hypertension
     Route: 048
     Dates: start: 2022
  9. VITAMIN D3 [Concomitant]
     Active Substance: CHOLECALCIFEROL
     Indication: Nutritional supplementation
     Dosage: 1000 PRESSOR UNITS
     Route: 048
     Dates: start: 202211
  10. PANTOPRAZOLE [Concomitant]
     Active Substance: PANTOPRAZOLE
     Indication: Gastrooesophageal reflux disease
     Route: 048
     Dates: start: 202207
  11. ROSUVASTATIN [Concomitant]
     Active Substance: ROSUVASTATIN
     Indication: Blood cholesterol increased
     Route: 048
     Dates: start: 20230320
  12. FOLIC ACID [Concomitant]
     Active Substance: FOLIC ACID
     Indication: Nutritional supplementation
     Route: 048
     Dates: start: 2019
  13. NADOL [Concomitant]
     Indication: Hypertension
     Route: 048
     Dates: start: 20220827
  14. VITAMIN B12 [Concomitant]
     Active Substance: CYANOCOBALAMIN
     Indication: Nutritional supplementation
     Route: 048
     Dates: start: 2020
  15. BETAMETHASONE DIPROPIONATE\CALCIPOTRIENE MONOHYDRATE [Concomitant]
     Active Substance: BETAMETHASONE DIPROPIONATE\CALCIPOTRIENE MONOHYDRATE
     Indication: Psoriasis
     Dosage: DOSE-1 APPLICATION
     Route: 061
     Dates: start: 20230609
  16. METAMUCIL [Concomitant]
     Active Substance: PLANTAGO SEED
     Indication: Crohn^s disease
     Route: 048
     Dates: start: 202311
  17. HYDROCHLOROTHIAZIDE [Concomitant]
     Active Substance: HYDROCHLOROTHIAZIDE
     Indication: Hypertension
     Route: 048
     Dates: start: 20231030
  18. UPADACITINIB [Concomitant]
     Active Substance: UPADACITINIB
     Indication: Crohn^s disease
     Route: 048
     Dates: start: 20231025, end: 20240117
  19. UPADACITINIB [Concomitant]
     Active Substance: UPADACITINIB
     Indication: Crohn^s disease
     Route: 048
     Dates: start: 20240118, end: 20241022
  20. UPADACITINIB [Concomitant]
     Active Substance: UPADACITINIB
     Indication: Crohn^s disease
     Route: 048
     Dates: start: 20241023
  21. TINZAPARIN [Concomitant]
     Active Substance: TINZAPARIN
     Indication: Thrombosis prophylaxis
     Dosage: 8000 PRESSOR UNITS
     Route: 058
     Dates: start: 20240401, end: 20240407
  22. PREDNISONE [Concomitant]
     Active Substance: PREDNISONE
     Indication: Crohn^s disease
     Route: 048
     Dates: start: 20240619
  23. Kleen [Concomitant]
     Indication: Bowel preparation
     Route: 048
     Dates: start: 20240429, end: 20240429
  24. PROPOFOL [Concomitant]
     Active Substance: PROPOFOL
     Indication: Sedative therapy
     Route: 042
     Dates: start: 20240430, end: 20240430

REACTIONS (4)
  - Intestinal obstruction [Unknown]
  - Abdominal pain [Recovered/Resolved]
  - Upper respiratory tract infection [Recovered/Resolved]
  - Irritable bowel syndrome [Unknown]

NARRATIVE: CASE EVENT DATE: 20240322
